FAERS Safety Report 17842870 (Version 4)
Quarter: 2020Q4

REPORT INFORMATION
  Report Type: Report from Study
  Country: GB (occurrence: GB)
  Receive Date: 20200530
  Receipt Date: 20201208
  Transmission Date: 20210113
  Serious: Yes (Other)
  Sender: FDA-Public Use
  Company Number: NVSC2020GB148557

PATIENT
  Sex: Male

DRUGS (2)
  1. METHOTREXATE. [Suspect]
     Active Substance: METHOTREXATE
     Indication: PRODUCT USED FOR UNKNOWN INDICATION
     Dosage: UNK
     Route: 065
  2. ERELZI [Suspect]
     Active Substance: ETANERCEPT-SZZS
     Indication: RHEUMATOID ARTHRITIS
     Dosage: 50 MG, QW
     Route: 058
     Dates: start: 20200303

REACTIONS (10)
  - Joint effusion [Unknown]
  - Rheumatoid arthritis [Unknown]
  - Grip strength decreased [Unknown]
  - Drug ineffective [Unknown]
  - Gait disturbance [Unknown]
  - Arthralgia [Unknown]
  - Liver function test abnormal [Unknown]
  - Blood test abnormal [Unknown]
  - Knee deformity [Unknown]
  - Arthritis [Unknown]
